FAERS Safety Report 16373896 (Version 1)
Quarter: 2019Q2

REPORT INFORMATION
  Report Type: Spontaneous
  Country: JP (occurrence: JP)
  Receive Date: 20190530
  Receipt Date: 20190530
  Transmission Date: 20190711
  Serious: Yes (Other)
  Sender: FDA-Public Use
  Company Number: JP-PFIZER INC-2019134029

PATIENT
  Age: 65 Year
  Sex: Male
  Weight: 70.7 kg

DRUGS (3)
  1. RHEUMATREX [Concomitant]
     Active Substance: METHOTREXATE SODIUM
     Indication: RHEUMATOID ARTHRITIS
     Dosage: 8 MG, WEEKLY
     Route: 048
     Dates: start: 2013, end: 20180105
  2. XELJANZ [Suspect]
     Active Substance: TOFACITINIB CITRATE
     Indication: RHEUMATOID ARTHRITIS
     Dosage: 5 MG, 1X/DAY
     Route: 048
     Dates: start: 20180919, end: 20190326
  3. RHEUMATREX [Concomitant]
     Active Substance: METHOTREXATE SODIUM
     Dosage: 6 MG, WEEKLY
     Route: 048
     Dates: start: 20180122, end: 20180326

REACTIONS (11)
  - Tachycardia [Recovering/Resolving]
  - Lymphocyte percentage increased [Recovering/Resolving]
  - Blood creatine phosphokinase increased [Unknown]
  - White blood cell count increased [Recovering/Resolving]
  - Protein urine present [Unknown]
  - Platelet count decreased [Unknown]
  - Monocyte percentage increased [Recovering/Resolving]
  - Gamma-glutamyltransferase increased [Recovering/Resolving]
  - Pyrexia [Recovered/Resolved]
  - Eosinophil percentage increased [Unknown]
  - Blood lactate dehydrogenase increased [Recovering/Resolving]

NARRATIVE: CASE EVENT DATE: 20190325
